FAERS Safety Report 4735689-0 (Version None)
Quarter: 2005Q3

REPORT INFORMATION
  Report Type: 
  Country: None (occurrence: None)
  Receive Date: 20050802
  Receipt Date: 20050721
  Transmission Date: 20060218
  Serious: Yes (Hospitalization, Other)
  Sender: FDA-Public Use
  Company Number: USA-2004-0017204

PATIENT
  Sex: Male

DRUGS (25)
  1. OXYCONTIN [Suspect]
     Indication: PAIN
     Dosage: SEE IMAGE
  2. OXYIR CAPSULES (OXYCODONE HYDROCHLORIDE) IR CAPSULE [Concomitant]
  3. GLUCOPHAGE [Concomitant]
  4. FLOMAX [Concomitant]
  5. LAMICTAL [Concomitant]
  6. BACLOFEN [Concomitant]
  7. BEXTRA [Concomitant]
  8. LASIX [Concomitant]
  9. NEXIUM [Concomitant]
  10. POTASSIUM CHLORIDE [Concomitant]
  11. GABITRIL [Concomitant]
  12. NORVASC [Concomitant]
  13. ALBUTEROL [Concomitant]
  14. ADVAIR DISKUS (FLUTICASONE PROPIONATE, SALMETEROL XINAFOATE) [Concomitant]
  15. LORTAB [Concomitant]
  16. MAVIK [Concomitant]
  17. BENAZEPRIL HCL [Concomitant]
  18. ACTOS [Concomitant]
  19. ASPIRIN [Concomitant]
  20. LIPITOR [Concomitant]
  21. COLCHICINE (COLCHICINE) [Concomitant]
  22. REMERON [Concomitant]
  23. DOXEPIN HCL [Concomitant]
  24. PEPCID [Concomitant]
  25. METFORMIN (MEFORMIN) [Concomitant]

REACTIONS (68)
  - ABDOMINAL PAIN [None]
  - ACUTE RESPIRATORY FAILURE [None]
  - ANAEMIA [None]
  - ANGINA UNSTABLE [None]
  - ANXIETY [None]
  - ARTHRALGIA [None]
  - BLOOD PH DECREASED [None]
  - BURNING SENSATION [None]
  - CARDIAC ENZYMES INCREASED [None]
  - CERVICOBRACHIAL SYNDROME [None]
  - CHEST DISCOMFORT [None]
  - CHEST PAIN [None]
  - CHILLS [None]
  - CONDITION AGGRAVATED [None]
  - DEPRESSION [None]
  - DIABETIC NEUROPATHY [None]
  - DIARRHOEA [None]
  - DRUG DEPENDENCE [None]
  - DRUG INEFFECTIVE [None]
  - DRUG WITHDRAWAL SYNDROME [None]
  - DYSPNOEA [None]
  - EMOTIONAL DISTRESS [None]
  - FATIGUE [None]
  - FLUID OVERLOAD [None]
  - FLUSHING [None]
  - GASTROINTESTINAL HAEMORRHAGE [None]
  - HAEMATOCHEZIA [None]
  - HEADACHE [None]
  - HYPERHIDROSIS [None]
  - HYPERKALAEMIA [None]
  - HYPERPHOSPHATAEMIA [None]
  - HYPERVENTILATION [None]
  - HYPOAESTHESIA [None]
  - INADEQUATE ANALGESIA [None]
  - INFLUENZA LIKE ILLNESS [None]
  - LOSS OF CONSCIOUSNESS [None]
  - LUMBAR RADICULOPATHY [None]
  - METABOLIC ACIDOSIS [None]
  - MOOD SWINGS [None]
  - MUSCLE SPASMS [None]
  - MUSCLE TWITCHING [None]
  - MUSCULAR WEAKNESS [None]
  - MYALGIA [None]
  - NAUSEA [None]
  - NECK PAIN [None]
  - OEDEMA [None]
  - PAIN [None]
  - PAIN IN EXTREMITY [None]
  - PANIC ATTACK [None]
  - PARAESTHESIA [None]
  - PERSONALITY CHANGE [None]
  - PO2 INCREASED [None]
  - PYREXIA [None]
  - RADICULOPATHY [None]
  - RENAL FAILURE ACUTE [None]
  - RESPIRATORY ARREST [None]
  - RESTLESSNESS [None]
  - RHINORRHOEA [None]
  - SHOULDER PAIN [None]
  - SLEEP DISORDER [None]
  - SPINAL OSTEOARTHRITIS [None]
  - SWELLING [None]
  - TENSION [None]
  - TORTICOLLIS [None]
  - TREMOR [None]
  - VOMITING [None]
  - WHEEZING [None]
  - WHITE BLOOD CELL COUNT INCREASED [None]
